FAERS Safety Report 8843456 (Version 1)
Quarter: 2012Q4

REPORT INFORMATION
  Report Type: 
  Country: US (occurrence: US)
  Receive Date: 20121016
  Receipt Date: 20121016
  Transmission Date: 20130627
  Serious: Yes (Other)
  Sender: FDA-Public Use
  Company Number: US-ROCHE-1141580

PATIENT
  Sex: Female

DRUGS (1)
  1. NUTROPIN [Suspect]
     Indication: TURNER^S SYNDROME
     Route: 065
     Dates: start: 19980112, end: 19980415

REACTIONS (3)
  - Right ventricular failure [Unknown]
  - Sleep apnoea syndrome [Unknown]
  - Tonsillar hypertrophy [Unknown]
